FAERS Safety Report 9137514 (Version 1)
Quarter: 2013Q1

REPORT INFORMATION
  Report Type: Report from Study
  Country: DE (occurrence: DE)
  Receive Date: 20130304
  Receipt Date: 20130304
  Transmission Date: 20140127
  Serious: Yes (Death, Hospitalization, Other)
  Sender: FDA-Public Use
  Company Number: DE-ABBOTT-13P-062-1056458-00

PATIENT
  Age: 50 None
  Sex: Male
  Weight: 87 kg

DRUGS (1)
  1. ZEMPLAR [Suspect]
     Indication: HYPERPARATHYROIDISM SECONDARY
     Route: 042
     Dates: start: 20120404, end: 20130120

REACTIONS (14)
  - Sudden death [Fatal]
  - Aortic valve stenosis [Fatal]
  - Cardiac failure [Fatal]
  - Acute myocardial infarction [Unknown]
  - Shunt occlusion [Unknown]
  - Shunt thrombosis [Unknown]
  - Leukocytosis [Unknown]
  - Anaemia [Unknown]
  - C-reactive protein increased [Unknown]
  - Blood thyroid stimulating hormone increased [Unknown]
  - PO2 decreased [Unknown]
  - Coronary artery disease [Fatal]
  - Heart valve calcification [Fatal]
  - Renal failure chronic [Fatal]
